FAERS Safety Report 5840931-9 (Version None)
Quarter: 2008Q3

REPORT INFORMATION
  Report Type: 
  Country: None (occurrence: None)
  Receive Date: 20080811
  Receipt Date: 20080730
  Transmission Date: 20090109
  Serious: Yes (Disabling)
  Sender: FDA-Public Use
  Company Number: GB-PFIZER INC-2008064516

PATIENT
  Age: 35 Year
  Sex: Female
  Weight: 107 kg

DRUGS (3)
  1. CHANTIX [Suspect]
     Indication: SMOKING CESSATION THERAPY
     Route: 048
     Dates: start: 20080620, end: 20080706
  2. MIGRIL [Concomitant]
     Indication: MIGRAINE
  3. SERETIDE [Concomitant]
     Indication: ASTHMA

REACTIONS (1)
  - PAIN [None]
